FAERS Safety Report 6234733-1 (Version None)
Quarter: 2009Q2

REPORT INFORMATION
  Report Type: 
  Country: None (occurrence: None)
  Receive Date: 20090615
  Receipt Date: 20090217
  Transmission Date: 20091009
  Serious: No
  Sender: FDA-Public Use
  Company Number: DSA_33240_2009

PATIENT
  Sex: Female

DRUGS (6)
  1. XENAZINE [Suspect]
     Indication: DYSTONIA
     Dosage: 25 MG TID ORAL
     Route: 048
     Dates: start: 20081201, end: 20090209
  2. BACLOFEN [Concomitant]
  3. ARCANE [Concomitant]
  4. PAROXETINE HCL [Concomitant]
  5. SINGULAIR [Concomitant]
  6. DARVOCET [Concomitant]

REACTIONS (2)
  - DEPRESSION [None]
  - TEARFULNESS [None]
